FAERS Safety Report 6161103-7 (Version None)
Quarter: 2009Q2

REPORT INFORMATION
  Report Type: 
  Country: None (occurrence: None)
  Receive Date: 20090421
  Receipt Date: 20090413
  Transmission Date: 20091009
  Serious: Yes (Other)
  Sender: FDA-Public Use
  Company Number: US-ELI_LILLY_AND_COMPANY-US200904002543

PATIENT
  Sex: Female
  Weight: 71.202 kg

DRUGS (3)
  1. BYETTA [Suspect]
     Indication: TYPE 2 DIABETES MELLITUS
     Dosage: 5 UG, UNK
     Route: 058
     Dates: start: 20090218, end: 20090318
  2. BYETTA [Suspect]
     Dosage: 10 UG, UNK
     Route: 058
     Dates: start: 20090318
  3. METFORMIN HCL [Concomitant]
     Dosage: UNK, EACH EVENING

REACTIONS (7)
  - BLOOD GLUCOSE INCREASED [None]
  - CONTUSION [None]
  - DECREASED APPETITE [None]
  - EYE OPERATION [None]
  - INJECTION SITE HAEMORRHAGE [None]
  - PRODUCT QUALITY ISSUE [None]
  - WEIGHT DECREASED [None]
